FAERS Safety Report 6779863-0 (Version None)
Quarter: 2010Q2

REPORT INFORMATION
  Report Type: 
  Country: None (occurrence: None)
  Receive Date: 20100618
  Receipt Date: 20100608
  Transmission Date: 20101027
  Serious: Yes (Other)
  Sender: FDA-Public Use
  Company Number: PHHY2010US35655

PATIENT
  Sex: Female
  Weight: 160 kg

DRUGS (10)
  1. EXTAVIA [Suspect]
     Indication: MULTIPLE SCLEROSIS
     Dosage: 0.25 MG, QOD
     Route: 058
     Dates: start: 20100401, end: 20100401
  2. EFFEXOR [Concomitant]
     Indication: DEPRESSION
     Dosage: 150 MG, QD
     Route: 048
  3. OMEPRAZOLE [Concomitant]
     Dosage: 40 MG, QD
     Route: 048
     Dates: start: 20090101
  4. PREDNISONE [Concomitant]
     Indication: ADDISON'S DISEASE
     Dosage: 5 MG, QD
     Route: 048
     Dates: start: 20100101
  5. NORCO [Concomitant]
     Indication: PAIN
     Dosage: 10/325, UNK
     Route: 048
     Dates: start: 20060101
  6. FENTANYL-75 [Concomitant]
     Indication: PAIN
     Dosage: 50 MCG, UNK
     Route: 061
     Dates: start: 20090501
  7. ADVIL LIQUI-GELS [Concomitant]
     Indication: PAIN
     Dosage: 200 MG PRN
     Route: 048
  8. DANTRIUM [Concomitant]
     Indication: MUSCLE DISORDER
     Dosage: 50 MG, QD
  9. RELPAX [Concomitant]
     Indication: MIGRAINE
     Dosage: UNK
     Route: 048
     Dates: start: 20090101
  10. LYRICA [Concomitant]
     Indication: PAIN
     Dosage: UNK
     Route: 048

REACTIONS (5)
  - FURUNCLE [None]
  - INJECTION SITE ERYTHEMA [None]
  - INJECTION SITE PRURITUS [None]
  - INJECTION SITE RASH [None]
  - RASH GENERALISED [None]
